FAERS Safety Report 5924099-6 (Version None)
Quarter: 2008Q4

REPORT INFORMATION
  Report Type: 
  Country: None (occurrence: None)
  Receive Date: 20081015
  Receipt Date: 20080930
  Transmission Date: 20090506
  Serious: Yes (Life-Threatening, Other)
  Sender: FDA-Public Use
  Company Number: 2008S1016822

PATIENT
  Age: 27 Year
  Sex: Male

DRUGS (3)
  1. BLEOMYCIN SULFATE [Suspect]
     Indication: GERM CELL CANCER
  2. CISPLATIN [Suspect]
     Indication: GERM CELL CANCER
  3. ETOPSOIDE (ETOPOSIDE) [Suspect]
     Indication: GERM CELL CANCER

REACTIONS (2)
  - CORONARY ARTERY THROMBOSIS [None]
  - MYOCARDIAL INFARCTION [None]
